FAERS Safety Report 8797354 (Version 1)
Quarter: 2012Q4

REPORT INFORMATION
  Report Type: 
  Country: US (occurrence: US)
  Receive Date: 20120920
  Receipt Date: 20120920
  Transmission Date: 20130627
  Serious: No
  Sender: FDA-Public Use
  Company Number: US-PFIZER INC-2012232014

PATIENT
  Sex: Female
  Weight: 58.96 kg

DRUGS (1)
  1. NEURONTIN [Suspect]
     Indication: CONVULSION
     Dosage: 400 mg, 3x/day

REACTIONS (2)
  - Fatigue [Unknown]
  - Asthenia [Unknown]
